FAERS Safety Report 9425660 (Version 1)
Quarter: 2013Q3

REPORT INFORMATION
  Report Type: Spontaneous
  Country: US (occurrence: US)
  Receive Date: 20130729
  Receipt Date: 20130729
  Transmission Date: 20140515
  Serious: Yes (Other)
  Sender: FDA-Public Use
  Company Number: US-TEVA-421552USA

PATIENT
  Age: 65 Year
  Sex: Female
  Weight: 54.48 kg

DRUGS (5)
  1. PROAIR HFA [Suspect]
     Indication: ASTHMA
     Dates: start: 2012
  2. PROAIR HFA [Suspect]
     Indication: CHRONIC OBSTRUCTIVE PULMONARY DISEASE
  3. CLARITIN [Concomitant]
  4. SPIRIVA [Concomitant]
  5. ADVAIR [Concomitant]

REACTIONS (1)
  - Pneumonia [Not Recovered/Not Resolved]
